FAERS Safety Report 20645056 (Version 2)
Quarter: 2022Q2

REPORT INFORMATION
  Report Type: Spontaneous
  Country: FR (occurrence: FR)
  Receive Date: 20220328
  Receipt Date: 20220412
  Transmission Date: 20220721
  Serious: Yes (Life-Threatening, Hospitalization)
  Sender: FDA-Public Use
  Company Number: FR-LUPIN PHARMACEUTICALS INC.-2022-04227

PATIENT
  Age: 72 Year
  Sex: Male

DRUGS (7)
  1. METHYLPREDNISOLONE [Suspect]
     Active Substance: METHYLPREDNISOLONE
     Indication: Lung adenocarcinoma
     Dosage: 10 MILLIGRAM/KILOGRAM, QD (BOLUS)
     Route: 065
  2. METHYLPREDNISOLONE [Suspect]
     Active Substance: METHYLPREDNISOLONE
     Indication: Adenocarcinoma metastatic
  3. PREDNISONE [Suspect]
     Active Substance: PREDNISONE
     Indication: Lung adenocarcinoma
     Dosage: 0.5 MILLIGRAM/KILOGRAM, QD (40 MG/DAY)
     Route: 065
  4. PREDNISONE [Suspect]
     Active Substance: PREDNISONE
     Indication: Adenocarcinoma metastatic
     Dosage: 1 MILLIGRAM/KILOGRAM, QD
     Route: 065
  5. DENOSUMAB [Concomitant]
     Active Substance: DENOSUMAB
     Indication: Lung adenocarcinoma
     Dosage: 120 MG EVERY 4 WEEKS
     Route: 065
  6. DENOSUMAB [Concomitant]
     Active Substance: DENOSUMAB
     Indication: Adenocarcinoma metastatic
  7. CEFOTAXIME [Concomitant]
     Active Substance: CEFOTAXIME SODIUM
     Indication: Antibiotic therapy
     Dosage: UNK
     Route: 065

REACTIONS (2)
  - Drug ineffective for unapproved indication [Unknown]
  - Off label use [Unknown]
